FAERS Safety Report 25810592 (Version 1)
Quarter: 2025Q3

REPORT INFORMATION
  Report Type: Spontaneous
  Country: CN (occurrence: CN)
  Receive Date: 20250917
  Receipt Date: 20250917
  Transmission Date: 20251021
  Serious: Yes (Hospitalization)
  Sender: BAXTER
  Company Number: None

PATIENT
  Age: 6 Year
  Sex: Female
  Weight: 20 kg

DRUGS (7)
  1. CYCLOPHOSPHAMIDE [Suspect]
     Active Substance: CYCLOPHOSPHAMIDE
     Indication: Hodgkin^s disease lymphocyte predominance type stage IV
     Dosage: 0.24 G, QD (D1-D4)
     Route: 041
     Dates: start: 20250824, end: 20250827
  2. MESNA [Suspect]
     Active Substance: MESNA
     Indication: Hodgkin^s disease lymphocyte predominance type stage IV
     Route: 065
     Dates: start: 20250824
  3. ETOPOSIDE [Suspect]
     Active Substance: ETOPOSIDE
     Indication: Hodgkin^s disease lymphocyte predominance type stage IV
     Dosage: 100 MG, QD (D1-3)
     Route: 041
     Dates: start: 20250824, end: 20250826
  4. SINTILIMAB [Suspect]
     Active Substance: SINTILIMAB
     Indication: Hodgkin^s disease lymphocyte predominance type stage IV
     Dosage: 60 MG, QD (D0)
     Route: 041
     Dates: start: 20250823, end: 20250823
  5. DOXORUBICIN HYDROCHLORIDE [Suspect]
     Active Substance: DOXORUBICIN HYDROCHLORIDE
     Indication: Hodgkin^s disease lymphocyte predominance type stage IV
     Dosage: 20 MG, QD (D2-3)
     Route: 041
     Dates: start: 20250825, end: 20250826
  6. BLEOMYCIN [Concomitant]
     Active Substance: BLEOMYCIN SULFATE
     Indication: Hodgkin^s disease lymphocyte predominance type stage IV
     Route: 065
     Dates: start: 20250824
  7. VINCRISTINE [Concomitant]
     Active Substance: VINCRISTINE
     Indication: Hodgkin^s disease lymphocyte predominance type stage IV
     Route: 065
     Dates: start: 20250824

REACTIONS (4)
  - Myelosuppression [Recovering/Resolving]
  - Pyrexia [Recovering/Resolving]
  - Serum amyloid A protein increased [Unknown]
  - C-reactive protein increased [Unknown]

NARRATIVE: CASE EVENT DATE: 20250903
